FAERS Safety Report 5705204-3 (Version None)
Quarter: 2008Q2

REPORT INFORMATION
  Report Type: 
  Country: None (occurrence: None)
  Receive Date: 20080402
  Receipt Date: 20080321
  Transmission Date: 20081010
  Serious: Yes (Hospitalization)
  Sender: FDA-Public Use
  Company Number: ALB-003-08-FR

PATIENT
  Age: 29 Year
  Sex: Female

DRUGS (1)
  1. OCTALBINE (HUMAN ALBUMIN) [Suspect]
     Indication: ASCITES
     Dosage: 2400 ML I.V.
     Route: 042
     Dates: start: 20080229, end: 20080229

REACTIONS (5)
  - CHEST PAIN [None]
  - DRUG EXPOSURE DURING PREGNANCY [None]
  - ELECTROCARDIOGRAM T WAVE INVERSION [None]
  - INFUSION RELATED REACTION [None]
  - PLEURAL EFFUSION [None]
